FAERS Safety Report 5524908-9 (Version None)
Quarter: 2007Q4

REPORT INFORMATION
  Report Type: 
  Country: None (occurrence: None)
  Receive Date: 20071119
  Receipt Date: 20071105
  Transmission Date: 20080405
  Serious: Yes (Hospitalization)
  Sender: FDA-Public Use
  Company Number: MPSI-10779

PATIENT
  Age: 4 Year
  Sex: Male
  Weight: 17.6 kg

DRUGS (2)
  1. ALDURAZYME [Suspect]
     Indication: MUCOPOLYSACCHARIDOSIS I
     Dosage: 10 MG QWK IV
     Route: 042
     Dates: start: 20040225
  2. BENADRYL [Concomitant]

REACTIONS (3)
  - AORTIC VALVE DISEASE [None]
  - CEREBROVASCULAR ACCIDENT [None]
  - MITRAL VALVE DISEASE [None]
